FAERS Safety Report 6305199-8 (Version None)
Quarter: 2009Q3

REPORT INFORMATION
  Report Type: 
  Country: None (occurrence: None)
  Receive Date: 20090811
  Receipt Date: 20090803
  Transmission Date: 20100115
  Serious: Yes (Hospitalization)
  Sender: FDA-Public Use
  Company Number: US-SANOFI-SYNTHELABO-A03200903429

PATIENT
  Sex: Male
  Weight: 79.4 kg

DRUGS (8)
  1. LUNESTA [Suspect]
     Indication: SUICIDE ATTEMPT
     Route: 048
     Dates: start: 20080328
  2. EMSAM [Concomitant]
     Indication: DEPRESSION
     Route: 062
     Dates: start: 20080301
  3. BENADRYL [Concomitant]
     Indication: INSOMNIA
     Route: 065
     Dates: start: 20080101
  4. DEPLIN [Concomitant]
     Indication: DEPRESSION
     Route: 065
     Dates: end: 20080327
  5. AMBIEN CR [Suspect]
     Indication: SUICIDE ATTEMPT
     Dosage: 12.5 TO 25 MG AT BEDTIME
     Route: 048
     Dates: start: 20080323, end: 20080328
  6. AMBIEN CR [Suspect]
     Indication: INSOMNIA
     Dosage: 12.5 TO 25 MG AT BEDTIME
     Route: 048
     Dates: start: 20080323, end: 20080328
  7. AMBIEN CR [Suspect]
     Route: 048
     Dates: start: 20080328
  8. AMBIEN CR [Suspect]
     Route: 048
     Dates: start: 20080328

REACTIONS (8)
  - DEPRESSION [None]
  - DRUG INEFFECTIVE [None]
  - INTENTIONAL SELF-INJURY [None]
  - MULTIPLE DRUG OVERDOSE INTENTIONAL [None]
  - OVERDOSE [None]
  - PAIN [None]
  - SUICIDE ATTEMPT [None]
  - TRANCE [None]
